FAERS Safety Report 5493708-0 (Version None)
Quarter: 2007Q4

REPORT INFORMATION
  Report Type: 
  Country: None (occurrence: None)
  Receive Date: 20071015
  Receipt Date: 20070828
  Transmission Date: 20080405
  Serious: No
  Sender: FDA-Public Use
  Company Number: 2007SP003038

PATIENT
  Age: 42 Year
  Sex: Female

DRUGS (4)
  1. LUNESTA [Suspect]
     Dosage: 3 MG;ORAL
     Route: 048
     Dates: start: 20070301, end: 20070701
  2. EFFEXOR [Concomitant]
  3. ANALGESICS [Concomitant]
  4. MUSCLE RELAXANTS [Concomitant]

REACTIONS (1)
  - INSOMNIA [None]
